FAERS Safety Report 7789145-6 (Version None)
Quarter: 2011Q3

REPORT INFORMATION
  Report Type: 
  Country: None (occurrence: None)
  Receive Date: 20110930
  Receipt Date: 20110921
  Transmission Date: 20111222
  Serious: No
  Sender: FDA-Public Use
  Company Number: JP-JNJFOC-20110907359

PATIENT
  Age: 52 Year
  Sex: Female

DRUGS (1)
  1. TRAMADOL HYDROCHLORIDE/ACETAMINOPHEN [Suspect]
     Indication: PAIN
     Dosage: 1 PER DAY
     Route: 048

REACTIONS (1)
  - FACE OEDEMA [None]
